FAERS Safety Report 10174046 (Version 2)
Quarter: 2014Q2

REPORT INFORMATION
  Report Type: Spontaneous
  Country: AT (occurrence: AT)
  Receive Date: 20140515
  Receipt Date: 20140526
  Transmission Date: 20141212
  Serious: Yes (Other)
  Sender: FDA-Public Use
  Company Number: AT-BRISTOL-MYERS SQUIBB COMPANY-20710810

PATIENT
  Age: 71 Year
  Sex: Female

DRUGS (1)
  1. ORENCIA FOR INJ [Suspect]
     Dosage: BATCH NUMBER: 3272185 (FEBRUARY, MARCH), 3074135 (APRIL)
     Route: 042
     Dates: start: 20130925, end: 20140407

REACTIONS (1)
  - Pulmonary fibrosis [Not Recovered/Not Resolved]
